FAERS Safety Report 15605157 (Version 2)
Quarter: 2018Q4

REPORT INFORMATION
  Report Type: Spontaneous
  Country: JP (occurrence: JP)
  Receive Date: 20181112
  Receipt Date: 20181205
  Transmission Date: 20190205
  Serious: Yes (Death, Life-Threatening, Other)
  Sender: FDA-Public Use
  Company Number: JP-ROCHE-2212485

PATIENT
  Age: 84 Year
  Sex: Female
  Weight: 40 kg

DRUGS (9)
  1. DENOSINE (JAPAN) [Suspect]
     Active Substance: GANCICLOVIR
     Route: 041
     Dates: start: 20181030, end: 20181102
  2. CRAVIT [Concomitant]
     Active Substance: LEVOFLOXACIN
     Indication: PNEUMONIA CYTOMEGALOVIRAL
     Route: 041
     Dates: start: 20181016
  3. CLINDAMYCIN PHOSPHATE. [Concomitant]
     Active Substance: CLINDAMYCIN PHOSPHATE
     Indication: PNEUMONIA CYTOMEGALOVIRAL
     Route: 065
     Dates: start: 20181031, end: 20181104
  4. OMEPRAZOLE. [Concomitant]
     Active Substance: OMEPRAZOLE
     Route: 041
     Dates: start: 20181023, end: 20181104
  5. SOL-MELCORT [Suspect]
     Active Substance: METHYLPREDNISOLONE SODIUM SUCCINATE
     Route: 041
     Dates: start: 20181031, end: 20181102
  6. SOL-MELCORT [Suspect]
     Active Substance: METHYLPREDNISOLONE SODIUM SUCCINATE
     Route: 041
     Dates: start: 20181103, end: 20181104
  7. PREDNISOLONE. [Suspect]
     Active Substance: PREDNISOLONE
     Indication: PNEUMONIA CYTOMEGALOVIRAL
     Route: 048
     Dates: start: 20180927
  8. SOL-MELCORT [Suspect]
     Active Substance: METHYLPREDNISOLONE SODIUM SUCCINATE
     Indication: PNEUMONIA CYTOMEGALOVIRAL
     Route: 041
     Dates: start: 20181019, end: 20181031
  9. DENOSINE (JAPAN) [Suspect]
     Active Substance: GANCICLOVIR
     Indication: PNEUMONIA CYTOMEGALOVIRAL
     Dosage: AT 10:00
     Route: 041
     Dates: start: 20181021, end: 20181030

REACTIONS (2)
  - Platelet count decreased [Not Recovered/Not Resolved]
  - Pancytopenia [Not Recovered/Not Resolved]

NARRATIVE: CASE EVENT DATE: 20181029
